FAERS Safety Report 19591823 (Version 2)
Quarter: 2022Q1

REPORT INFORMATION
  Report Type: Spontaneous
  Country: US (occurrence: US)
  Receive Date: 20210721
  Receipt Date: 20220216
  Transmission Date: 20220424
  Serious: No
  Sender: FDA-Public Use
  Company Number: US-NOVARTISTESTPH-NVSC2021US164731

PATIENT
  Age: 22 Year
  Sex: Female
  Weight: 39 kg

DRUGS (2)
  1. TOBI [Suspect]
     Active Substance: TOBRAMYCIN
     Indication: Bacterial infection
     Dosage: 60 MG/ML, QD
     Route: 055
     Dates: start: 20210710
  2. TOBI [Suspect]
     Active Substance: TOBRAMYCIN
     Dosage: UNK (300 MG/5 ML)
     Route: 048
     Dates: start: 20210712, end: 20210719

REACTIONS (5)
  - Application site haemorrhage [Not Recovered/Not Resolved]
  - Wrong technique in product usage process [Not Recovered/Not Resolved]
  - Product use in unapproved indication [Not Recovered/Not Resolved]
  - Respiration abnormal [Recovered/Resolved]
  - Haemoptysis [Recovered/Resolved]

NARRATIVE: CASE EVENT DATE: 20210701
